FAERS Safety Report 6861076-5 (Version None)
Quarter: 2010Q3

REPORT INFORMATION
  Report Type: 
  Country: None (occurrence: None)
  Receive Date: 20100720
  Receipt Date: 20100713
  Transmission Date: 20110219
  Serious: Yes (Hospitalization)
  Sender: FDA-Public Use
  Company Number: PHHO2007DE09528

PATIENT
  Sex: Male
  Weight: 82.5 kg

DRUGS (3)
  1. CERTICAN [Suspect]
     Indication: LIVER TRANSPLANT
     Dosage: 3.5 MG DAILY
     Route: 048
     Dates: start: 20061218
  2. SIMULECT [Concomitant]
     Indication: LIVER TRANSPLANT
  3. TACROLIMUS [Concomitant]
     Indication: LIVER TRANSPLANT
     Dosage: UNK
     Dates: start: 20061111

REACTIONS (3)
  - HEPATOTOXICITY [None]
  - LIVER TRANSPLANT REJECTION [None]
  - TRANSAMINASES INCREASED [None]
